FAERS Safety Report 8509129-X (Version None)
Quarter: 2012Q3

REPORT INFORMATION
  Report Type: 
  Country: None (occurrence: None)
  Receive Date: 20120713
  Receipt Date: 20120703
  Transmission Date: 20120928
  Serious: Yes (Death)
  Sender: FDA-Public Use
  Company Number: US-GLAXOSMITHKLINE-A0984129A

PATIENT
  Sex: Female

DRUGS (2)
  1. ARIXTRA [Concomitant]
     Route: 065
  2. FONDAPARINUX SODIUM [Suspect]
     Indication: THROMBOSIS PROPHYLAXIS
     Route: 065

REACTIONS (3)
  - HERPES ZOSTER [None]
  - KIDNEY INFECTION [None]
  - DEATH [None]
